FAERS Safety Report 9856803 (Version 2)
Quarter: 2014Q1

REPORT INFORMATION
  Report Type: Spontaneous
  Country: US (occurrence: US)
  Receive Date: 20140130
  Receipt Date: 20140130
  Transmission Date: 20141002
  Serious: Yes (Hospitalization)
  Sender: FDA-Public Use
  Company Number: US-B.I. PHARMACEUTICALS,INC./RIDGEFIELD-2013-BI-31795BP

PATIENT
  Age: 86 Year
  Sex: Female
  Weight: 56.7 kg

DRUGS (13)
  1. PRADAXA [Suspect]
     Indication: ATRIAL FIBRILLATION
     Dosage: 300 MG
     Route: 048
     Dates: start: 20110718, end: 20111012
  2. DILTIAZEM XL [Concomitant]
     Dosage: 30 MG
     Route: 048
  3. CARVEDILOL [Concomitant]
     Dosage: 12.5 MG
     Route: 048
  4. NAMENDA [Concomitant]
     Dosage: 20 MG
     Route: 048
  5. LASIX [Concomitant]
     Dosage: 20 MG
     Route: 048
  6. SEROQUEL [Concomitant]
     Dosage: 25 MG
     Route: 048
  7. ARICEPT [Concomitant]
     Dosage: 10 MG
     Route: 048
  8. ASPIRIN [Concomitant]
     Dosage: 81 MG
     Route: 048
  9. CENTRUM [Concomitant]
  10. COLACE [Concomitant]
     Route: 048
  11. FERROUS SULFATE [Concomitant]
     Dosage: 325 MG
     Route: 048
  12. LISINOPRIL [Concomitant]
     Dosage: 2.5 MG
     Route: 048
  13. METHIMAZOLE [Concomitant]
     Dosage: 5 MG
     Route: 048

REACTIONS (3)
  - Gastrointestinal haemorrhage [Recovered/Resolved]
  - Hypotension [Recovered/Resolved]
  - Anaemia [Unknown]
